FAERS Safety Report 6700046-4 (Version None)
Quarter: 2010Q2

REPORT INFORMATION
  Report Type: 
  Country: None (occurrence: None)
  Receive Date: 20100428
  Receipt Date: 20100422
  Transmission Date: 20101027
  Serious: Yes (Other)
  Sender: FDA-Public Use
  Company Number: US-BRISTOL-MYERS SQUIBB COMPANY-15067572

PATIENT
  Age: 58 Year
  Sex: Male

DRUGS (1)
  1. MAXIPIME [Suspect]
     Indication: URINARY TRACT INFECTION
     Dosage: THE PATIENT RECEIVED 4 DOSES.
     Dates: start: 20100411, end: 20100413

REACTIONS (2)
  - BILE DUCT OBSTRUCTION [None]
  - LIVER FUNCTION TEST ABNORMAL [None]
